FAERS Safety Report 7094657-7 (Version None)
Quarter: 2010Q4

REPORT INFORMATION
  Report Type: 
  Country: None (occurrence: None)
  Receive Date: 20101110
  Receipt Date: 20081223
  Transmission Date: 20110411
  Serious: Yes (Death, Other)
  Sender: FDA-Public Use
  Company Number: US-AMGEN-QUU389034

PATIENT

DRUGS (5)
  1. NPLATE [Suspect]
     Indication: IDIOPATHIC THROMBOCYTOPENIC PURPURA
     Dosage: UNK UNK, UNK
     Dates: start: 20081223
  2. CORTICOSTEROID NOS [Concomitant]
  3. IMMU-G [Concomitant]
  4. FLUDARABINE [Concomitant]
  5. RITUXIMAB [Concomitant]
     Dosage: UNK UNK, UNK

REACTIONS (2)
  - DEATH [None]
  - HAEMATOLOGICAL MALIGNANCY [None]
